FAERS Safety Report 13850092 (Version 2)
Quarter: 2017Q4

REPORT INFORMATION
  Report Type: Spontaneous
  Country: US (occurrence: US)
  Receive Date: 20170809
  Receipt Date: 20171107
  Transmission Date: 20180320
  Serious: No
  Sender: FDA-Public Use
  Company Number: US-LUPIN PHARMACEUTICALS INC.-2017-04098

PATIENT
  Age: 78 Year
  Sex: Female
  Weight: 58.96 kg

DRUGS (2)
  1. LISINOPRIL TABLETS USP, 20MG [Suspect]
     Active Substance: LISINOPRIL
     Indication: HYPERTENSION
     Dosage: UNK
     Route: 065
  2. LISINOPRIL TABLETS USP, 20MG [Suspect]
     Active Substance: LISINOPRIL
     Dosage: 1 DF, QD
     Route: 048
     Dates: start: 20170612, end: 20170713

REACTIONS (2)
  - Blood pressure increased [Unknown]
  - Alopecia [Recovered/Resolved]

NARRATIVE: CASE EVENT DATE: 20170612
